FAERS Safety Report 8380803-1 (Version None)
Quarter: 2012Q2

REPORT INFORMATION
  Report Type: 
  Country: None (occurrence: None)
  Receive Date: 20120523
  Receipt Date: 20120514
  Transmission Date: 20120825
  Serious: Yes (Death, Hospitalization, Other)
  Sender: FDA-Public Use
  Company Number: FR-TEVA-338118ISR

PATIENT
  Age: 60 Year
  Sex: Male

DRUGS (2)
  1. CLOPIDOGREL [Suspect]
     Indication: CORONARY ARTERY STENOSIS
     Dosage: LOADING DOSE
     Route: 065
  2. NOVOSEVEN RT [Suspect]
     Indication: DISSEMINATED INTRAVASCULAR COAGULATION
     Dosage: 90 MICROG/KG

REACTIONS (3)
  - AORTIC THROMBOSIS [None]
  - DISSEMINATED INTRAVASCULAR COAGULATION [None]
  - MULTI-ORGAN FAILURE [None]
